FAERS Safety Report 14775762 (Version 1)
Quarter: 2018Q2

REPORT INFORMATION
  Report Type: Spontaneous
  Country: US (occurrence: US)
  Receive Date: 20180412
  Receipt Date: 20180412
  Transmission Date: 20180711
  Serious: No
  Sender: FDA-Public Use
  Company Number: None

PATIENT
  Sex: Male

DRUGS (1)
  1. OTEZLA [Suspect]
     Active Substance: APREMILAST
     Indication: PSORIASIS
     Route: 048
     Dates: start: 201803

REACTIONS (6)
  - Muscle spasms [None]
  - Nausea [None]
  - Pain in extremity [None]
  - Testicular disorder [None]
  - Diarrhoea [None]
  - Therapy non-responder [None]
